FAERS Safety Report 6139069-5 (Version None)
Quarter: 2009Q1

REPORT INFORMATION
  Report Type: 
  Country: None (occurrence: None)
  Receive Date: 20090324
  Receipt Date: 20090323
  Transmission Date: 20090719
  Serious: Yes (Other)
  Sender: FDA-Public Use
  Company Number: 189220USA

PATIENT
  Age: 70 Year
  Sex: Female

DRUGS (4)
  1. WARFARIN SODIUM [Suspect]
     Indication: ATRIAL FIBRILLATION
     Dosage: 7.5 MG AND 5 MG WEEKLY,ORAL
     Route: 048
  2. CAPECITABINE [Suspect]
     Indication: ADENOCARCINOMA PANCREAS
     Dates: start: 20060501, end: 20061001
  3. GEMCITABINE HCL [Suspect]
     Indication: ADENOCARCINOMA PANCREAS
     Dosage: 1 IN 2 WK
     Dates: start: 20060501, end: 20080201
  4. DOCETAXEL [Concomitant]

REACTIONS (10)
  - ADENOCARCINOMA PANCREAS [None]
  - ASCITES [None]
  - DISEASE PROGRESSION [None]
  - DRUG INTERACTION [None]
  - FATIGUE [None]
  - GENERAL PHYSICAL HEALTH DETERIORATION [None]
  - HAEMATOCRIT DECREASED [None]
  - INTERNATIONAL NORMALISED RATIO INCREASED [None]
  - METASTATIC NEOPLASM [None]
  - OEDEMA [None]
